FAERS Safety Report 12104055 (Version 1)
Quarter: 2016Q1

REPORT INFORMATION
  Report Type: Report from Study
  Country: CN (occurrence: CN)
  Receive Date: 20160223
  Receipt Date: 20160223
  Transmission Date: 20160526
  Serious: Yes (Other)
  Sender: FDA-Public Use
  Company Number: CN-ACCORD-038116

PATIENT
  Age: 62 Year
  Sex: Female

DRUGS (3)
  1. HYDROXYCAMPTOTHECIN [Suspect]
     Active Substance: 10-HYDROXYCAMPTOTHECIN
     Indication: HEPATOCELLULAR CARCINOMA
     Dosage: 10-20 MG?TOTAL 03 TACE CYCLE RECEIVED
     Route: 013
  2. MITOMYCIN. [Suspect]
     Active Substance: MITOMYCIN
     Indication: HEPATOCELLULAR CARCINOMA
     Dosage: 5-10 MG?TOTAL 03 TACE CYCLE RECEIVED
     Route: 013
  3. LIPIODOL [Suspect]
     Active Substance: ETHIODIZED OIL
     Indication: HEPATOCELLULAR CARCINOMA
     Dosage: 10-20 ML?TOTAL 03 TACE CYCLE RECEIVED
     Route: 013

REACTIONS (1)
  - Hepatitis B [Recovered/Resolved]
